FAERS Safety Report 5974817-6 (Version None)
Quarter: 2008Q4

REPORT INFORMATION
  Report Type: 
  Country: None (occurrence: None)
  Receive Date: 20081201
  Receipt Date: 20081126
  Transmission Date: 20090506
  Serious: Yes (Hospitalization)
  Sender: FDA-Public Use
  Company Number: FR-PFIZER INC-2008100611

PATIENT
  Sex: Female

DRUGS (2)
  1. CYTOTEC [Suspect]
     Dosage: TEXT:10 DF
     Route: 048
     Dates: start: 20070916, end: 20070916
  2. ADALAT [Suspect]
     Route: 048
     Dates: start: 20070916, end: 20070916

REACTIONS (3)
  - BLOOD PRESSURE DIASTOLIC DECREASED [None]
  - PYREXIA [None]
  - TACHYCARDIA [None]
